FAERS Safety Report 6099636-4 (Version None)
Quarter: 2009Q1

REPORT INFORMATION
  Report Type: 
  Country: None (occurrence: None)
  Receive Date: 20090303
  Receipt Date: 20090130
  Transmission Date: 20090719
  Serious: No
  Sender: FDA-Public Use
  Company Number: US-BAYER-200910363BCC

PATIENT
  Age: 96 Year
  Sex: Female
  Weight: 52 kg

DRUGS (4)
  1. ALEVE [Suspect]
     Indication: ARTHRALGIA
     Dosage: TOTAL DAILY DOSE: 220 MG  UNIT DOSE: 220 MG
     Route: 048
     Dates: start: 20081201, end: 20090129
  2. ALEVE [Suspect]
     Dosage: TOTAL DAILY DOSE: 440 MG  UNIT DOSE: 220 MG
     Dates: start: 20081201, end: 20090129
  3. NORVASC [Concomitant]
  4. THYROID MEDICATION [Concomitant]

REACTIONS (2)
  - ERYTHEMA [None]
  - URTICARIA [None]
